FAERS Safety Report 13471631 (Version 3)
Quarter: 2017Q2

REPORT INFORMATION
  Report Type: Spontaneous
  Country: US (occurrence: US)
  Receive Date: 20170424
  Receipt Date: 20170601
  Transmission Date: 20170830
  Serious: No
  Sender: FDA-Public Use
  Company Number: US-PFIZER INC-2017172987

PATIENT
  Age: 77 Year
  Sex: Female

DRUGS (2)
  1. LYRICA [Suspect]
     Active Substance: PREGABALIN
     Dosage: 50 MG, 2X/DAY (ONE IN THE MORNING AND ONE AT NIGHT FOR 6 WEEKS)
  2. LYRICA [Suspect]
     Active Substance: PREGABALIN
     Indication: NEURALGIA
     Dosage: 50 MG, DAILY, AT BED TIME
     Dates: start: 201612

REACTIONS (6)
  - Weight increased [Unknown]
  - Gait disturbance [Unknown]
  - Coordination abnormal [Unknown]
  - Intentional product misuse [Unknown]
  - Dizziness [Unknown]
  - Fear [Unknown]

NARRATIVE: CASE EVENT DATE: 20170301
